FAERS Safety Report 25996355 (Version 1)
Quarter: 2025Q4

REPORT INFORMATION
  Report Type: Spontaneous
  Country: US (occurrence: None)
  Receive Date: 20251104
  Receipt Date: 20251104
  Transmission Date: 20260118
  Serious: Yes (Death)
  Sender: FDA-CTU
  Company Number: None

PATIENT
  Age: 78 Year
  Sex: Female

DRUGS (1)
  1. QUTENZA [Suspect]
     Active Substance: CAPSAICIN
     Indication: Type 2 diabetes mellitus
     Dosage: PHYSICIAN IN THE OFFICE TO APPLY PATCHES EVERY 3 MONTHS
     Route: 050

REACTIONS (1)
  - Death [None]

NARRATIVE: CASE EVENT DATE: 20251031
